FAERS Safety Report 17275484 (Version 2)
Quarter: 2020Q1

REPORT INFORMATION
  Report Type: Report from Study
  Country: CA (occurrence: CA)
  Receive Date: 20200116
  Receipt Date: 20200130
  Transmission Date: 20200409
  Serious: No
  Sender: FDA-Public Use
  Company Number: CA-BEH-2020111379

PATIENT
  Age: 61 Year
  Sex: Male

DRUGS (9)
  1. HIZENTRA [Suspect]
     Active Substance: HUMAN IMMUNOGLOBULIN G
     Dosage: 8 GRAM, TOT
     Route: 058
     Dates: start: 20200112, end: 20200112
  2. HIZENTRA [Suspect]
     Active Substance: HUMAN IMMUNOGLOBULIN G
     Dosage: 8 GRAM (2 X4G/20ML VIALS IN ABOUT 1 HOUR AND A QUARTER), QW
     Route: 058
  3. AVAPRO [Concomitant]
     Active Substance: IRBESARTAN
     Indication: BLOOD PRESSURE INCREASED
     Dosage: UNK
     Route: 065
     Dates: end: 2009
  4. CLONAZEPAM. [Concomitant]
     Active Substance: CLONAZEPAM
  5. HIZENTRA [Suspect]
     Active Substance: HUMAN IMMUNOGLOBULIN G
     Dosage: 4 GRAM, BIW
     Route: 058
     Dates: start: 20170207
  6. HIZENTRA [Suspect]
     Active Substance: HUMAN IMMUNOGLOBULIN G
     Indication: SECONDARY IMMUNODEFICIENCY
     Dosage: 4 GRAM, BIW
     Route: 058
     Dates: start: 20170207
  7. HIZENTRA [Suspect]
     Active Substance: HUMAN IMMUNOGLOBULIN G
     Dosage: 8 GRAM, TOT
     Route: 058
     Dates: start: 20200119, end: 20200119
  8. AMLODIPINE [Concomitant]
     Active Substance: AMLODIPINE BESYLATE
     Indication: BLOOD PRESSURE INCREASED
     Dosage: UNK
     Route: 065
     Dates: end: 2019
  9. HIZENTRA [Suspect]
     Active Substance: HUMAN IMMUNOGLOBULIN G
     Indication: CHRONIC LYMPHOCYTIC LEUKAEMIA
     Dosage: 4 GRAM, BIW
     Route: 058
     Dates: start: 201910

REACTIONS (6)
  - Malabsorption from injection site [Unknown]
  - Blood pressure increased [Recovered/Resolved]
  - Erythema [Unknown]
  - Product use issue [Unknown]
  - Headache [Unknown]
  - No adverse event [Unknown]

NARRATIVE: CASE EVENT DATE: 2019
